FAERS Safety Report 20968959 (Version 1)
Quarter: 2022Q2

REPORT INFORMATION
  Report Type: Spontaneous
  Country: US (occurrence: US)
  Receive Date: 20220616
  Receipt Date: 20220616
  Transmission Date: 20220721
  Serious: Yes (Other)
  Sender: FDA-Public Use
  Company Number: US-Blueprint Medicines Corporation-SP-US-2022-001844

PATIENT
  Sex: Female

DRUGS (1)
  1. AYVAKIT [Suspect]
     Active Substance: AVAPRITINIB
     Indication: Systemic mastocytosis
     Route: 048
     Dates: start: 20211201

REACTIONS (4)
  - Psoriatic arthropathy [Not Recovered/Not Resolved]
  - Increased appetite [Not Recovered/Not Resolved]
  - Psoriasis [Not Recovered/Not Resolved]
  - Gout [Not Recovered/Not Resolved]
